FAERS Safety Report 6326931-3 (Version None)
Quarter: 2009Q3

REPORT INFORMATION
  Report Type: 
  Country: None (occurrence: None)
  Receive Date: 20090825
  Receipt Date: 20081117
  Transmission Date: 20100115
  Serious: Yes (Hospitalization, Congenital Anomaly)
  Sender: FDA-Public Use
  Company Number: TR-NOVOPROD-257084

PATIENT
  Sex: Male
  Weight: 1.25 kg

DRUGS (6)
  1. NOVOMIX 30 [Suspect]
     Indication: TYPE 2 DIABETES MELLITUS
     Route: 064
     Dates: start: 20050412
  2. NOVORAPID [Suspect]
     Indication: TYPE 2 DIABETES MELLITUS
     Route: 064
  3. NOVORAPID [Suspect]
  4. INSULATARD HM PENFILL [Concomitant]
     Indication: TYPE 2 DIABETES MELLITUS
     Route: 064
  5. INSULATARD HM PENFILL [Concomitant]
  6. DOXAPRAM [Concomitant]

REACTIONS (16)
  - 5-ALPHA-REDUCTASE DEFICIENCY [None]
  - APGAR SCORE LOW [None]
  - BRADYCARDIA NEONATAL [None]
  - CAESAREAN SECTION [None]
  - CONGENITAL CORONARY ARTERY MALFORMATION [None]
  - CYANOSIS NEONATAL [None]
  - ENZYME ABNORMALITY [None]
  - GENITALIA EXTERNAL AMBIGUOUS [None]
  - HEMIVERTEBRA [None]
  - HYPOXIC ENCEPHALOPATHY [None]
  - INTRAVENTRICULAR HAEMORRHAGE NEONATAL [None]
  - MATERNAL DRUGS AFFECTING FOETUS [None]
  - MULTIPLE CONGENITAL ABNORMALITIES [None]
  - NEONATAL ASPIRATION [None]
  - PREMATURE BABY [None]
  - RENAL FUSION ANOMALY [None]
